FAERS Safety Report 9410699 (Version 1)
Quarter: 2013Q3

REPORT INFORMATION
  Report Type: Report from Study
  Country: BR (occurrence: BR)
  Receive Date: 20130719
  Receipt Date: 20130719
  Transmission Date: 20140515
  Serious: Yes (Other)
  Sender: FDA-Public Use
  Company Number: BR-ABBOTT-13P-020-1119499-00

PATIENT
  Age: 76 Year
  Sex: Female
  Weight: 47.5 kg

DRUGS (3)
  1. HUMIRA [Suspect]
     Indication: RHEUMATOID ARTHRITIS
     Route: 058
  2. TORSILAX [Concomitant]
     Indication: PAIN
     Route: 048
  3. UNKNOWN DRUG [Concomitant]
     Indication: BLOOD PRESSURE ABNORMAL

REACTIONS (5)
  - Faecal incontinence [Recovering/Resolving]
  - Intestinal haemorrhage [Unknown]
  - Hypotonia [Unknown]
  - Weight decreased [Unknown]
  - Anaemia [Unknown]
